FAERS Safety Report 12144467 (Version 2)
Quarter: 2016Q1

REPORT INFORMATION
  Report Type: Spontaneous
  Country: US (occurrence: US)
  Receive Date: 20160304
  Receipt Date: 20160330
  Transmission Date: 20160526
  Serious: Yes (Other)
  Sender: FDA-Public Use
  Company Number: US-ASTRAZENECA-2016SE20747

PATIENT
  Age: 59 Year
  Sex: Female

DRUGS (33)
  1. PRILOSEC [Suspect]
     Active Substance: OMEPRAZOLE MAGNESIUM
     Route: 048
  2. DIFLUCAN [Suspect]
     Active Substance: FLUCONAZOLE
     Route: 065
  3. LIPITOR [Suspect]
     Active Substance: ATORVASTATIN CALCIUM
     Route: 065
  4. ZYRTEC [Suspect]
     Active Substance: CETIRIZINE HYDROCHLORIDE
     Route: 065
  5. SYNTHROID [Concomitant]
     Active Substance: LEVOTHYROXINE SODIUM
  6. IMODIUM [Concomitant]
     Active Substance: LOPERAMIDE HYDROCHLORIDE
  7. ZOLOFT [Suspect]
     Active Substance: SERTRALINE HYDROCHLORIDE
     Route: 065
  8. ASPIRIN. [Concomitant]
     Active Substance: ASPIRIN
  9. VITAMIN C [Concomitant]
     Active Substance: ASCORBIC ACID
     Route: 030
  10. VITAMIN K [Concomitant]
     Active Substance: PHYTONADIONE
  11. CYTOMEL [Suspect]
     Active Substance: LIOTHYRONINE SODIUM
     Route: 065
  12. VITAMIN B12 [Concomitant]
     Active Substance: CYANOCOBALAMIN
  13. VITAMIN B6 [Concomitant]
     Active Substance: PYRIDOXINE HYDROCHLORIDE
  14. VITAMIN E [Concomitant]
     Active Substance: .ALPHA.-TOCOPHEROL
     Dosage: 400 UNIT
  15. LEVOFLOXACIN. [Concomitant]
     Active Substance: LEVOFLOXACIN
     Dosage: 250 MG TAB A 1/4 TO 1/2 A TAB ONCE A DAY
  16. SALINEX [Concomitant]
     Dosage: AS REQUIRED
  17. TAMOXIFEN [Suspect]
     Active Substance: TAMOXIFEN
     Route: 048
  18. FASLODEX [Suspect]
     Active Substance: FULVESTRANT
     Route: 030
     Dates: start: 201406
  19. CORTEF [Suspect]
     Active Substance: HYDROCORTISONE
     Dosage: 50 MG DAILY- 7AM-3PM (5MG PER HOUR, 8PM (5 MG)
     Route: 065
  20. TERAZOL [Concomitant]
     Active Substance: TERCONAZOLE
     Route: 067
  21. ACIDOPHLLUS [Concomitant]
  22. KAOPECTATE REGULAR STRENGTH CHERRY FLAVOR [Concomitant]
     Active Substance: BISMUTH SUBSALICYLATE
     Dosage: AS REQUIRED
  23. CLEOCIN [Suspect]
     Active Substance: CLINDAMYCIN PHOSPHATE
     Route: 065
  24. ESTRING [Suspect]
     Active Substance: ESTRADIOL
     Route: 065
  25. PEPCID [Concomitant]
     Active Substance: FAMOTIDINE
  26. ZOFRAN [Concomitant]
     Active Substance: ONDANSETRON HYDROCHLORIDE
  27. PERCOCET [Concomitant]
     Active Substance: ACETAMINOPHEN\OXYCODONE HYDROCHLORIDE
     Dosage: 5-325MG TAB
  28. CETAPHIL [Concomitant]
     Active Substance: AVOBENZONE\OCTOCRYLENE\TRICLOSAN
     Dosage: AS REQUIRED
  29. TYLENOL [Concomitant]
     Active Substance: ACETAMINOPHEN
  30. COLACE [Concomitant]
     Active Substance: DOCUSATE SODIUM
  31. VITAMIN D2 [Concomitant]
     Active Substance: ERGOCALCIFEROL
     Route: 048
  32. CORTEF [Suspect]
     Active Substance: HYDROCORTISONE
     Dosage: 10 TABS DAILY
     Route: 065
  33. ECOTRIN [Concomitant]
     Active Substance: ASPIRIN

REACTIONS (34)
  - Dyslipidaemia [Unknown]
  - Irritable bowel syndrome [Unknown]
  - Fall [Unknown]
  - Lethargy [Unknown]
  - Haemorrhoids [Unknown]
  - Memory impairment [Unknown]
  - Amnesia [Unknown]
  - Balance disorder [Unknown]
  - Migraine [Unknown]
  - Addison^s disease [Unknown]
  - Endocrine disorder [Unknown]
  - Osteoporosis [Not Recovered/Not Resolved]
  - Fatigue [Unknown]
  - Eructation [Not Recovered/Not Resolved]
  - Headache [Unknown]
  - Tarsal tunnel syndrome [Unknown]
  - Flatulence [Unknown]
  - Night sweats [Unknown]
  - Breast cancer [Unknown]
  - Hypothyroidism [Unknown]
  - Neuropathy peripheral [Unknown]
  - Diverticulitis [Unknown]
  - General physical condition abnormal [Unknown]
  - Tinnitus [Not Recovered/Not Resolved]
  - Gastrointestinal disorder [Unknown]
  - Arthritis [Unknown]
  - Thyroid mass [Unknown]
  - Learning disorder [Unknown]
  - Vertigo [Not Recovered/Not Resolved]
  - Hyperhidrosis [Unknown]
  - Depression [Unknown]
  - Goitre [Unknown]
  - Pain [Unknown]
  - Hypercholesterolaemia [Unknown]

NARRATIVE: CASE EVENT DATE: 2000
